FAERS Safety Report 8166558-4 (Version None)
Quarter: 2012Q1

REPORT INFORMATION
  Report Type: 
  Country: None (occurrence: None)
  Receive Date: 20120227
  Receipt Date: 20111222
  Transmission Date: 20120608
  Serious: Yes (Other)
  Sender: FDA-Public Use
  Company Number: US-BRISTOL-MYERS SQUIBB COMPANY-16092264

PATIENT
  Age: 55 Year
  Sex: Female

DRUGS (5)
  1. VALTREX [Concomitant]
  2. ATIVAN [Concomitant]
  3. ACETAMINOPHEN [Concomitant]
  4. TAXOL [Suspect]
     Indication: BREAST CANCER
     Route: 042
     Dates: start: 20110527, end: 20110624
  5. BENADRYL [Concomitant]

REACTIONS (2)
  - DRUG HYPERSENSITIVITY [None]
  - PNEUMONIA [None]
